FAERS Safety Report 9921470 (Version 3)
Quarter: 2015Q2

REPORT INFORMATION
  Report Type: Report from Study
  Country: AU (occurrence: AU)
  Receive Date: 20140225
  Receipt Date: 20150505
  Transmission Date: 20150821
  Serious: Yes (Hospitalization, Other)
  Sender: FDA-Public Use
  Company Number: PHHY2014AU022151

PATIENT
  Age: 42 Year
  Sex: Female

DRUGS (13)
  1. CLOZARIL [Suspect]
     Active Substance: CLOZAPINE
     Dosage: 550 MG, DAILY AT NIGHT
     Route: 048
  2. NEXIAM [Concomitant]
     Active Substance: ESOMEPRAZOLE
     Indication: GASTROOESOPHAGEAL REFLUX DISEASE
     Dosage: 1 DF, (SWALLOW 1 TABLET)
     Route: 048
  3. CLOZARIL [Suspect]
     Active Substance: CLOZAPINE
     Indication: SCHIZOPHRENIA
     Dosage: UNK
     Route: 048
     Dates: start: 20070323
  4. CENTRUM [Concomitant]
     Active Substance: VITAMINS
     Indication: MINERAL SUPPLEMENTATION
  5. ATORVASTATIN PFIZER [Concomitant]
     Active Substance: ATORVASTATIN
     Indication: LIVER FUNCTION TEST ABNORMAL
     Dosage: 1 DF, ONCE EACH DAY
     Route: 065
  6. VENLAFAXINE HCL [Concomitant]
     Active Substance: VENLAFAXINE HYDROCHLORIDE
     Indication: PRODUCT USED FOR UNKNOWN INDICATION
     Dosage: 1 DF, ONCE EACH DAY
     Route: 065
  7. ZYPREXA [Concomitant]
     Active Substance: OLANZAPINE
     Indication: SCHIZOPHRENIA
     Dosage: 1 DF, UNK
     Route: 065
  8. DITROPAN [Concomitant]
     Active Substance: OXYBUTYNIN CHLORIDE
     Indication: PRODUCT USED FOR UNKNOWN INDICATION
     Dosage: 1 DF, 1 TABLET EACH DAY
     Route: 065
  9. CLOPINE [Suspect]
     Active Substance: CLOZAPINE
     Indication: SCHIZOPHRENIA
     Dosage: 550 MG, UNK ( 100 MG 5 TABLET AND 25 MG 2 TABLETS) AT NIGHT
     Route: 048
  10. DYMADON P [Concomitant]
     Indication: PAIN
     Dosage: 2 DF, TID
     Route: 065
  11. OLMETEC [Concomitant]
     Active Substance: OLMESARTAN MEDOXOMIL
     Indication: PRODUCT USED FOR UNKNOWN INDICATION
     Dosage: 1 DF,ONCE EACH DAY
     Route: 065
  12. CLOZARIL [Suspect]
     Active Substance: CLOZAPINE
     Route: 048
  13. CENTRUM [Concomitant]
     Active Substance: VITAMINS
     Indication: VITAMIN SUPPLEMENTATION
     Dosage: 1 DF, UNK (1 TABLET IN MORNING)
     Route: 065

REACTIONS (29)
  - Decreased appetite [Unknown]
  - Gastrointestinal necrosis [Unknown]
  - Haematocrit decreased [Recovered/Resolved]
  - Pseudomembranous colitis [Unknown]
  - Abdominal adhesions [Unknown]
  - Blood calcium increased [Unknown]
  - Septic shock [Unknown]
  - Tenderness [Unknown]
  - Hypotension [Unknown]
  - Confusional state [Unknown]
  - Gamma-glutamyltransferase increased [Unknown]
  - Platelet count increased [Not Recovered/Not Resolved]
  - Monocyte count increased [Recovered/Resolved]
  - Red blood cell count decreased [Recovered/Resolved]
  - Haemoglobin decreased [Not Recovered/Not Resolved]
  - Clostridium difficile colitis [Unknown]
  - Abdominal distension [Unknown]
  - Diarrhoea [Unknown]
  - Acidosis [Unknown]
  - Malaise [Unknown]
  - Abdominal pain [Unknown]
  - White blood cell count increased [Not Recovered/Not Resolved]
  - Lower respiratory tract infection [Unknown]
  - Blood phosphorus increased [Unknown]
  - Neutrophil count increased [Not Recovered/Not Resolved]
  - Balance disorder [Unknown]
  - Blood urea increased [Unknown]
  - Blood alkaline phosphatase increased [Unknown]
  - Agitation [Unknown]

NARRATIVE: CASE EVENT DATE: 20140128
